FAERS Safety Report 19655059 (Version 1)
Quarter: 2021Q3

REPORT INFORMATION
  Report Type: Spontaneous
  Country: US (occurrence: US)
  Receive Date: 20210803
  Receipt Date: 20210803
  Transmission Date: 20211014
  Serious: No
  Sender: FDA-Public Use
  Company Number: US-009507513-2107USA008869

PATIENT

DRUGS (1)
  1. VERQUVO [Suspect]
     Active Substance: VERICIGUAT
     Dosage: UNK
     Route: 048

REACTIONS (3)
  - Product dose omission issue [Unknown]
  - No adverse event [Unknown]
  - Product distribution issue [Unknown]
